FAERS Safety Report 13399948 (Version 1)
Quarter: 2017Q2

REPORT INFORMATION
  Report Type: Spontaneous
  Country: VE (occurrence: VE)
  Receive Date: 20170404
  Receipt Date: 20170404
  Transmission Date: 20170830
  Serious: Yes (Other)
  Sender: FDA-Public Use
  Company Number: VE-APOTEX-2017AP009749

PATIENT
  Age: 48 Year
  Sex: Female

DRUGS (1)
  1. PAXIL [Suspect]
     Active Substance: PAROXETINE HYDROCHLORIDE
     Indication: PANIC ATTACK
     Dosage: 56 MG, Z
     Route: 048

REACTIONS (7)
  - Paraesthesia [Unknown]
  - Product availability issue [Unknown]
  - Drug ineffective [Unknown]
  - Anxiety [Unknown]
  - Mood altered [Unknown]
  - Syncope [Unknown]
  - Myocardial infarction [Unknown]
